FAERS Safety Report 8432848-0 (Version None)
Quarter: 2012Q2

REPORT INFORMATION
  Report Type: 
  Country: None (occurrence: None)
  Receive Date: 20120613
  Receipt Date: 20120605
  Transmission Date: 20120825
  Serious: Yes (Death, Other)
  Sender: FDA-Public Use
  Company Number: CA-ROCHE-1037283

PATIENT
  Sex: Male
  Weight: 75.364 kg

DRUGS (10)
  1. ZOPICLONE [Concomitant]
  2. PANTOPRAZOLE [Concomitant]
  3. ATIVAN [Concomitant]
  4. COLACE [Concomitant]
  5. METHYLPREDNISOLONE [Concomitant]
     Route: 042
     Dates: start: 20120120, end: 20120120
  6. AVASTIN [Suspect]
     Indication: GLIOBLASTOMA
     Route: 042
     Dates: start: 20110801, end: 20120510
  7. SENOKOT [Concomitant]
  8. ACETAMINOPHEN [Concomitant]
  9. DEXAMETHASONE [Concomitant]
  10. OLANZAPINE [Concomitant]

REACTIONS (2)
  - DISEASE PROGRESSION [None]
  - DEATH [None]
